FAERS Safety Report 10572196 (Version 4)
Quarter: 2014Q4

REPORT INFORMATION
  Report Type: Spontaneous
  Country: RU (occurrence: RU)
  Receive Date: 20141108
  Receipt Date: 20141122
  Transmission Date: 20150529
  Serious: Yes (Other)
  Sender: FDA-Public Use
  Company Number: RU-AMGEN-RUSSP2014071618

PATIENT
  Age: 30 Year
  Sex: Female
  Weight: 66 kg

DRUGS (7)
  1. NPLATE [Suspect]
     Active Substance: ROMIPLOSTIM
     Indication: IMMUNE THROMBOCYTOPENIC PURPURA
     Dosage: 6 MUG/KG, QWK
     Route: 065
     Dates: start: 20110301
  2. OCTAGAM IMMUNE GLOBULIN (HUMAN) [Concomitant]
     Active Substance: HUMAN IMMUNOGLOBULIN G
     Dosage: 10 % - 50 ML
  3. OMEPRAZOLE. [Concomitant]
     Active Substance: OMEPRAZOLE
     Indication: GASTRITIS
     Dosage: 20 MG, QD
     Route: 048
     Dates: start: 20140915, end: 20141029
  4. ETAMSYLATE [Concomitant]
     Active Substance: ETHAMSYLATE
     Indication: HAEMORRHAGIC DISORDER
     Dosage: 250 MG, TID
     Route: 048
     Dates: start: 20140915
  5. VITAMIN C [Concomitant]
     Active Substance: ASCORBIC ACID
     Dosage: 1 DF, TID
  6. UTROGESTAN [Concomitant]
     Active Substance: PROGESTERONE
     Indication: ABORTION SPONTANEOUS
     Dosage: 400 MG, BID
     Route: 048
     Dates: start: 20140918, end: 20140930
  7. PREDNISOLONE. [Concomitant]
     Active Substance: PREDNISOLONE
     Indication: HAEMORRHAGIC DISORDER
     Dosage: 60 MG, TID
     Route: 048
     Dates: end: 20141029

REACTIONS (4)
  - Abortion threatened [Unknown]
  - Purpura [Recovered/Resolved]
  - Influenza [Unknown]
  - Drug ineffective [Unknown]

NARRATIVE: CASE EVENT DATE: 201111
